FAERS Safety Report 19861411 (Version 1)
Quarter: 2021Q3

REPORT INFORMATION
  Report Type: Spontaneous
  Country: CN (occurrence: CN)
  Receive Date: 20210920
  Receipt Date: 20210920
  Transmission Date: 20211014
  Serious: Yes (Other)
  Sender: FDA-Public Use
  Company Number: CN-PFIZER INC-202101192409

PATIENT
  Age: 71 Year
  Sex: Female

DRUGS (1)
  1. FLUCONAZOLE. [Suspect]
     Active Substance: FLUCONAZOLE
     Indication: ANTIFUNGAL TREATMENT
     Dosage: 0.2 G, 2X/DAY
     Route: 041
     Dates: start: 20210823, end: 20210824

REACTIONS (2)
  - Nausea [Recovering/Resolving]
  - Retching [Recovering/Resolving]

NARRATIVE: CASE EVENT DATE: 20210823
